FAERS Safety Report 10404484 (Version 1)
Quarter: 2014Q2

REPORT INFORMATION
  Report Type: Spontaneous
  Country: US (occurrence: None)
  Receive Date: 20140428
  Receipt Date: 20140428
  Transmission Date: 20141212
  Serious: Yes (Other)
  Sender: FDA-Public Use
  Company Number: 2523595-2014-00117

PATIENT
  Age: 46 Year
  Sex: Male
  Weight: 62 kg

DRUGS (1)
  1. UVADEX [Suspect]
     Indication: GRAFT VERSUS HOST DISEASE
     Dosage: AT LEAST 45 DAYS - 11/05/2012/MULTIPLE LOTS
     Dates: end: 20121105

REACTIONS (2)
  - Pyrexia [None]
  - Chills [None]
